FAERS Safety Report 10559714 (Version 3)
Quarter: 2014Q4

REPORT INFORMATION
  Report Type: Spontaneous
  Country: US (occurrence: US)
  Receive Date: 20141103
  Receipt Date: 20141231
  Transmission Date: 20150529
  Serious: No
  Sender: FDA-Public Use
  Company Number: US-PFIZER INC-2014300929

PATIENT
  Age: 62 Year
  Sex: Female

DRUGS (8)
  1. ULTRAM [Suspect]
     Active Substance: TRAMADOL HYDROCHLORIDE
     Dosage: UNK
  2. DOXYCYCLINE HYCLATE. [Suspect]
     Active Substance: DOXYCYCLINE HYCLATE
     Dosage: UNK
  3. LYRICA [Suspect]
     Active Substance: PREGABALIN
     Indication: FIBROMYALGIA
     Dosage: 50 MG, 3X/DAY (4 YEAR AGO)
     Route: 048
  4. KLONOPIN [Suspect]
     Active Substance: CLONAZEPAM
     Dosage: UNK
     Dates: start: 201409
  5. HYDROCODONE [Suspect]
     Active Substance: HYDROCODONE
     Dosage: UNK
  6. LYRICA [Suspect]
     Active Substance: PREGABALIN
     Dosage: 50 MG, 3X/DAY
     Route: 048
     Dates: start: 20141003
  7. ESTRADIOL. [Suspect]
     Active Substance: ESTRADIOL
     Dosage: UNK
  8. LISINOPRIL. [Suspect]
     Active Substance: LISINOPRIL
     Dosage: UNK

REACTIONS (2)
  - Drug hypersensitivity [Unknown]
  - Off label use [Unknown]
